FAERS Safety Report 15903188 (Version 1)
Quarter: 2019Q1

REPORT INFORMATION
  Report Type: Spontaneous
  Country: FR (occurrence: FR)
  Receive Date: 20190202
  Receipt Date: 20190202
  Transmission Date: 20190417
  Serious: Yes (Other)
  Sender: FDA-Public Use
  Company Number: FR-TEVA-2019-FR-1007054

PATIENT
  Age: 54 Year
  Sex: Female
  Weight: 49 kg

DRUGS (1)
  1. EPIRUBICIN [Suspect]
     Active Substance: EPIRUBICIN
     Indication: BREAST CANCER
     Route: 042
     Dates: start: 20180821, end: 20181030

REACTIONS (2)
  - Left ventricular dysfunction [Not Recovered/Not Resolved]
  - Cardiotoxicity [Not Recovered/Not Resolved]

NARRATIVE: CASE EVENT DATE: 201812
